FAERS Safety Report 7822930-0 (Version None)
Quarter: 2011Q4

REPORT INFORMATION
  Report Type: 
  Country: None (occurrence: None)
  Receive Date: 20111018
  Receipt Date: 20101001
  Transmission Date: 20120403
  Serious: No
  Sender: FDA-Public Use
  Company Number: US-ASTRAZENECA-2010SE46699

PATIENT
  Sex: Male

DRUGS (7)
  1. SYMBICORT [Suspect]
     Indication: ASTHMA
     Dosage: 160/4.5 MCG TWO PUFFS
     Route: 055
  2. NORVASC [Concomitant]
     Route: 048
  3. COMBIVENT [Concomitant]
     Dosage: 18-130MCG ONE PUFF FOUR TIMES A DAY
  4. PROVENTIL [Concomitant]
     Dosage: 2.5MG/3ML AS DIRECTED EVERY TWO HOURS AS NEEDED
  5. ASPIRIN [Concomitant]
     Route: 048
  6. PROAIR HFA [Concomitant]
     Indication: DYSPNOEA
     Dosage: INHALE TWO PUFFS AS DIRECTED EVERY FOUR HOURS
  7. MEVACOR [Concomitant]
     Route: 048

REACTIONS (5)
  - CHRONIC OBSTRUCTIVE PULMONARY DISEASE [None]
  - HYPERLIPIDAEMIA [None]
  - PALPITATIONS [None]
  - HAEMATOCHEZIA [None]
  - HYPERTENSION [None]
